FAERS Safety Report 12389832 (Version 1)
Quarter: 2016Q2

REPORT INFORMATION
  Report Type: Spontaneous
  Country: US (occurrence: US)
  Receive Date: 20160520
  Receipt Date: 20160520
  Transmission Date: 20160815
  Serious: Yes (Other)
  Sender: FDA-Public Use
  Company Number: US-ACTELION-A-US2016-136448

PATIENT
  Age: 57 Year
  Sex: Female

DRUGS (8)
  1. IRON [Concomitant]
     Active Substance: IRON
  2. VITAMIN D [Concomitant]
     Active Substance: CHOLECALCIFEROL
  3. LETAIRIS [Concomitant]
     Active Substance: AMBRISENTAN
  4. SYNTHROID [Concomitant]
     Active Substance: LEVOTHYROXINE SODIUM
  5. VELETRI [Suspect]
     Active Substance: EPOPROSTENOL
     Indication: PULMONARY ARTERIAL HYPERTENSION
     Dosage: UNK
     Route: 042
     Dates: start: 20160114, end: 20160501
  6. REVATIO [Concomitant]
     Active Substance: SILDENAFIL CITRATE
  7. BUMETANIDE. [Concomitant]
     Active Substance: BUMETANIDE
  8. POTASSIUM [Concomitant]
     Active Substance: POTASSIUM

REACTIONS (1)
  - Lung transplant [Unknown]

NARRATIVE: CASE EVENT DATE: 20160501
